FAERS Safety Report 6546265-1 (Version None)
Quarter: 2010Q1

REPORT INFORMATION
  Report Type: 
  Country: None (occurrence: None)
  Receive Date: 20100122
  Receipt Date: 20100113
  Transmission Date: 20100710
  Serious: Yes (Other)
  Sender: FDA-Public Use
  Company Number: GB-BRISTOL-MYERS SQUIBB COMPANY-14904494

PATIENT
  Age: 17 Year
  Sex: Male

DRUGS (17)
  1. CYCLOPHOSPHAMIDE [Suspect]
  2. DOXORUBICIN HCL [Suspect]
     Indication: BURKITT'S LYMPHOMA
     Route: 065
  3. ETOPOSIDE [Suspect]
     Indication: BURKITT'S LYMPHOMA
     Route: 065
  4. VINCRISTINE SULFATE [Suspect]
     Indication: IMMUNOSUPPRESSION
     Route: 065
  5. MERCAPTOPURINE [Suspect]
     Indication: BURKITT'S LYMPHOMA
     Route: 065
  6. THIOGUANINE [Suspect]
     Indication: BURKITT'S LYMPHOMA
     Route: 065
  7. ACYCLOVIR [Suspect]
     Indication: PROPHYLAXIS
     Route: 065
  8. ARA-C [Suspect]
     Indication: BURKITT'S LYMPHOMA
     Route: 065
  9. TRIMETHOPRIM [Suspect]
     Route: 065
  10. DEXRAZOXANE [Suspect]
     Route: 065
  11. ITRACONAZOLE [Suspect]
     Indication: PROPHYLAXIS
     Route: 065
  12. METHOTREXATE [Suspect]
     Indication: BURKITT'S LYMPHOMA
     Dosage: 1 DF: 4 G/M2
     Route: 037
  13. PREDNISOLONE [Suspect]
     Indication: BURKITT'S LYMPHOMA
     Dosage: 1 DF: 2 G/M2
     Route: 065
  14. RITUXIMAB [Suspect]
     Indication: BURKITT'S LYMPHOMA
     Route: 065
  15. TACROLIMUS [Suspect]
     Indication: IMMUNOSUPPRESSION
     Dosage: 1 DF: 4-5 MICROGRAM/LITER
     Route: 065
  16. PREDNISONE [Suspect]
  17. ONCOVIN [Suspect]

REACTIONS (2)
  - NEUTROPENIA [None]
  - RENAL IMPAIRMENT [None]
